FAERS Safety Report 12035683 (Version 2)
Quarter: 2016Q1

REPORT INFORMATION
  Report Type: Other
  Country: US (occurrence: US)
  Receive Date: 20160207
  Receipt Date: 20160219
  Transmission Date: 20160526
  Serious: No
  Sender: FDA-Public Use
  Company Number: US-ACORDA-ACO_108271_2015

PATIENT
  Age: 42 Year
  Sex: Female
  Weight: 56.69 kg

DRUGS (3)
  1. LEXAPRO [Concomitant]
     Active Substance: ESCITALOPRAM OXALATE
     Indication: PRODUCT USED FOR UNKNOWN INDICATION
     Dosage: UNK
     Dates: start: 2014
  2. AMPYRA [Suspect]
     Active Substance: DALFAMPRIDINE
     Indication: GAIT DISTURBANCE
     Dosage: 10 MG, BID
     Route: 048
     Dates: start: 20141201, end: 20141215
  3. REBIF [Concomitant]
     Active Substance: INTERFERON BETA-1A
     Indication: PRODUCT USED FOR UNKNOWN INDICATION
     Dosage: UNK
     Dates: start: 2009

REACTIONS (5)
  - Decreased appetite [Recovering/Resolving]
  - Weight increased [Unknown]
  - Weight decreased [Recovered/Resolved]
  - Drug ineffective [Unknown]
  - Dry throat [Recovered/Resolved]

NARRATIVE: CASE EVENT DATE: 20141201
